FAERS Safety Report 13125280 (Version 1)
Quarter: 2017Q1

REPORT INFORMATION
  Report Type: Report from Study
  Country: ES (occurrence: ES)
  Receive Date: 20170118
  Receipt Date: 20170118
  Transmission Date: 20170428
  Serious: Yes (Other)
  Sender: FDA-Public Use
  Company Number: ES-KADMON PHARMACEUTICALS, LLC-KAD201701-000095

PATIENT
  Age: 60 Year
  Sex: Male

DRUGS (9)
  1. RIBAVIRIN. [Suspect]
     Active Substance: RIBAVIRIN
     Indication: HEPATITIS C
     Dosage: TABLET
     Route: 048
     Dates: start: 20151008, end: 20160324
  2. METHADONE [Concomitant]
     Active Substance: METHADONE HYDROCHLORIDE
  3. VIEKIRAX [Suspect]
     Active Substance: OMBITASVIR\PARITAPREVIR\RITONAVIR
     Indication: HEPATITIS C
     Dosage: COATED TABLET
     Route: 048
     Dates: start: 20151008
  4. EXVIERA 250 MG [Suspect]
     Active Substance: DASABUVIR
     Indication: HEPATITIS C
     Dosage: COATED TABLET
     Route: 048
     Dates: start: 20151008
  5. ALPRAZOLAM. [Concomitant]
     Active Substance: ALPRAZOLAM
  6. RIBAVIRIN. [Suspect]
     Active Substance: RIBAVIRIN
     Dosage: TABLET
     Route: 048
     Dates: start: 20160324
  7. EUTIROX [Concomitant]
     Active Substance: LEVOTHYROXINE SODIUM
  8. CARVEDILOL. [Concomitant]
     Active Substance: CARVEDILOL
  9. HIDROFEROL [Concomitant]
     Active Substance: CALCIFEDIOL

REACTIONS (2)
  - Hyperbilirubinaemia [Recovered/Resolved]
  - Irritability [Recovered/Resolved]

NARRATIVE: CASE EVENT DATE: 20151105
